FAERS Safety Report 14657313 (Version 3)
Quarter: 2024Q4

REPORT INFORMATION
  Report Type: Spontaneous
  Country: US (occurrence: US)
  Receive Date: 20180319
  Receipt Date: 20241223
  Transmission Date: 20250114
  Serious: Yes (Other)
  Sender: MERCK
  Company Number: US-009507513-1803USA004706

PATIENT

DRUGS (7)
  1. TEMODAR [Suspect]
     Active Substance: TEMOZOLOMIDE
     Indication: Central nervous system lymphoma
     Dosage: 150 MG/M2, CYCLICAL, DAY 1-5 IN 28-DAY CYCLES
     Route: 048
  2. TEMODAR [Suspect]
     Active Substance: TEMOZOLOMIDE
     Indication: Diffuse large B-cell lymphoma recurrent
  3. RITUXIMAB [Suspect]
     Active Substance: RITUXIMAB
     Indication: Central nervous system lymphoma
     Dosage: 375 MG/M2, CYCLICAL, ON DAY 1 IN 28-DAY CYCLES
  4. RITUXIMAB [Suspect]
     Active Substance: RITUXIMAB
     Indication: Diffuse large B-cell lymphoma
  5. METHOTREXATE [Suspect]
     Active Substance: METHOTREXATE
     Indication: Central nervous system lymphoma
     Dosage: 8 G/M2, CYCLICAL, DAY 1 AND 15 IN 28-DAY CYCLES
  6. METHOTREXATE [Suspect]
     Active Substance: METHOTREXATE
     Indication: Diffuse large B-cell lymphoma
  7. LEUCOVORIN [Concomitant]
     Active Substance: LEUCOVORIN\LEUCOVORIN CALCIUM
     Indication: Supplementation therapy

REACTIONS (4)
  - Acute kidney injury [Recovered/Resolved]
  - Neutropenic sepsis [Recovered/Resolved]
  - Hypertransaminasaemia [Recovered/Resolved]
  - Product use in unapproved indication [Unknown]
